FAERS Safety Report 6997516-0 (Version None)
Quarter: 2010Q3

REPORT INFORMATION
  Report Type: 
  Country: None (occurrence: None)
  Receive Date: 20100918
  Receipt Date: 20091022
  Transmission Date: 20110219
  Serious: No
  Sender: FDA-Public Use
  Company Number: US-WYE-H11858709

PATIENT
  Sex: Female
  Weight: 74.91 kg

DRUGS (14)
  1. PRISTIQ [Suspect]
     Indication: DEPRESSION
     Route: 048
     Dates: start: 20090901
  2. POTASSIUM [Concomitant]
  3. ZETIA [Concomitant]
  4. CONJUGATED ESTROGENS [Concomitant]
  5. PROTONIX [Concomitant]
  6. ATENOLOL [Concomitant]
  7. NORVASC [Concomitant]
  8. NITROGLYCERIN [Concomitant]
  9. XANAX [Concomitant]
  10. TRAZODONE HCL [Concomitant]
  11. ZANAFLEX [Concomitant]
  12. ISORBID [Concomitant]
  13. TOPAMAX [Concomitant]
  14. LIPITOR [Concomitant]

REACTIONS (1)
  - DIARRHOEA [None]
